FAERS Safety Report 16950426 (Version 2)
Quarter: 2019Q4

REPORT INFORMATION
  Report Type: Report from Study
  Country: JP (occurrence: JP)
  Receive Date: 20191023
  Receipt Date: 20191101
  Transmission Date: 20200122
  Serious: Yes (Hospitalization)
  Sender: FDA-Public Use
  Company Number: JP-EISAI MEDICAL RESEARCH-EC-2019-063888

PATIENT
  Age: 68 Year
  Sex: Male
  Weight: 55 kg

DRUGS (13)
  1. TAKECAB [Concomitant]
     Active Substance: VONOPRAZAN FUMURATE
  2. XARELTO [Concomitant]
     Active Substance: RIVAROXABAN
  3. ENTECAVIR HYDRATE [Concomitant]
  4. DECADRON [Concomitant]
     Active Substance: DEXAMETHASONE
  5. SODIUM PICOSULFATE HYDRATE [Concomitant]
     Active Substance: SODIUM PICOSULFATE
  6. DAIKENCHUTO [Concomitant]
     Active Substance: HERBALS
  7. FUROSEMIDE. [Concomitant]
     Active Substance: FUROSEMIDE
  8. MAGMITT [Concomitant]
     Active Substance: MAGNESIUM OXIDE
  9. SUCRALFATE HYDRATE [Concomitant]
     Active Substance: SUCRALFATE
  10. LENVIMA [Suspect]
     Active Substance: LENVATINIB
     Indication: HEPATOCELLULAR CARCINOMA
     Route: 048
     Dates: start: 20190717, end: 20190730
  11. LENVIMA [Suspect]
     Active Substance: LENVATINIB
     Route: 048
     Dates: start: 20190909, end: 20190923
  12. LENVIMA [Suspect]
     Active Substance: LENVATINIB
     Route: 048
     Dates: start: 20190813, end: 20190908
  13. URSODEOXYCHOLIC ACID [Concomitant]
     Active Substance: URSODIOL

REACTIONS (1)
  - Decreased appetite [Recovering/Resolving]

NARRATIVE: CASE EVENT DATE: 20190826
